FAERS Safety Report 7481429-4 (Version None)
Quarter: 2011Q2

REPORT INFORMATION
  Report Type: 
  Country: None (occurrence: None)
  Receive Date: 20110516
  Receipt Date: 20110503
  Transmission Date: 20111010
  Serious: Yes (Hospitalization, Other)
  Sender: FDA-Public Use
  Company Number: DE-ACTELION-A-CH2011-48390

PATIENT
  Age: 35 Year
  Sex: Female

DRUGS (4)
  1. WARFARIN SODIUM [Concomitant]
  2. EPOPROSTENOL SODIUM [Concomitant]
     Route: 042
  3. DIURETICS [Concomitant]
  4. TRACLEER [Suspect]
     Indication: PULMONARY ARTERIAL HYPERTENSION
     Route: 048

REACTIONS (12)
  - INTRA-ABDOMINAL HAEMORRHAGE [None]
  - TRACHEOSTOMY [None]
  - TRICUSPID VALVE INCOMPETENCE [None]
  - PULMONARY ARTERIAL PRESSURE INCREASED [None]
  - SURGERY [None]
  - EJECTION FRACTION DECREASED [None]
  - MULTIPLE INJURIES [None]
  - ROAD TRAFFIC ACCIDENT [None]
  - KIDNEY RUPTURE [None]
  - HYPOXIA [None]
  - TRAUMATIC LUNG INJURY [None]
  - PULMONARY OEDEMA [None]
